FAERS Safety Report 6083007-0 (Version None)
Quarter: 2009Q1

REPORT INFORMATION
  Report Type: 
  Country: None (occurrence: None)
  Receive Date: 20090218
  Receipt Date: 20090211
  Transmission Date: 20090719
  Serious: Yes (Hospitalization)
  Sender: FDA-Public Use
  Company Number: US-GENENTECH-277334

PATIENT
  Sex: Male
  Weight: 90.7 kg

DRUGS (7)
  1. RITUXIMAB [Suspect]
     Indication: B-CELL LYMPHOMA
     Dosage: 780 MG, UNK
     Route: 042
     Dates: start: 20090114
  2. VELCADE [Suspect]
     Indication: B-CELL LYMPHOMA
     Dosage: 3.33 MG, UNK
     Route: 042
     Dates: start: 20090114
  3. BENDAMUSTINE [Suspect]
     Indication: B-CELL LYMPHOMA
     Dosage: 187 MG, UNK
     Route: 042
     Dates: start: 20090114
  4. ASPIRIN [Concomitant]
     Indication: DRUG USE FOR UNKNOWN INDICATION
  5. AZOR [Concomitant]
     Indication: DRUG USE FOR UNKNOWN INDICATION
  6. ACETAMINOFEN [Concomitant]
     Indication: DRUG USE FOR UNKNOWN INDICATION
  7. FLOMAX [Concomitant]
     Indication: DRUG USE FOR UNKNOWN INDICATION

REACTIONS (1)
  - FEBRILE NEUTROPENIA [None]
